FAERS Safety Report 10192471 (Version 1)
Quarter: 2014Q2

REPORT INFORMATION
  Report Type: Spontaneous
  Country: US (occurrence: US)
  Receive Date: 20140523
  Receipt Date: 20140523
  Transmission Date: 20141212
  Serious: No
  Sender: FDA-Public Use
  Company Number: US-BAUSCH-BL-2013-006074

PATIENT
  Sex: Male

DRUGS (5)
  1. IPRATROPIUM BROMIDE NASAL SOLUTION 0.03% [Suspect]
     Indication: UPPER-AIRWAY COUGH SYNDROME
     Dosage: 2 SPRAYS INTO RIGHT NOSTRIL AS NEEDED
     Route: 045
     Dates: start: 201212, end: 201212
  2. IPRATROPIUM BROMIDE NASAL SOLUTION 0.03% [Suspect]
     Dosage: TWO SPRAYS INTO LEFT NOSTRIL AS NEEDED
     Route: 045
     Dates: start: 201212, end: 201212
  3. IPRATROPIUM BROMIDE NASAL SOLUTION 0.03% [Suspect]
     Dosage: TWO SPRAYS INTO RIGHT NOSTRIL AS NEEDED
     Route: 045
     Dates: start: 201311
  4. IPRATROPIUM BROMIDE NASAL SOLUTION 0.03% [Suspect]
     Dosage: TWO SPRAYS INTO LEFT NOSTRIL AS NEEDED
     Route: 045
     Dates: start: 201311
  5. ASTELIN [Concomitant]
     Indication: UPPER-AIRWAY COUGH SYNDROME

REACTIONS (3)
  - Off label use [Not Recovered/Not Resolved]
  - Hyposmia [Not Recovered/Not Resolved]
  - Hypogeusia [Not Recovered/Not Resolved]
